FAERS Safety Report 4907589-4 (Version None)
Quarter: 2006Q1

REPORT INFORMATION
  Report Type: 
  Country: None (occurrence: None)
  Receive Date: 20060208
  Receipt Date: 20060208
  Transmission Date: 20060701
  Serious: Yes (Hospitalization, Other)
  Sender: FDA-Public Use
  Company Number: None

PATIENT
  Sex: Female
  Weight: 65 kg

DRUGS (1)
  1. TAMOXIFEN (NOVALDEX) [Suspect]
     Indication: BREAST CANCER
     Dosage: 3620 MG
     Dates: end: 20060131

REACTIONS (5)
  - CERVICITIS [None]
  - ENDOMETRIAL HYPERTROPHY [None]
  - OVARIAN CYST [None]
  - UTERINE ENLARGEMENT [None]
  - VAGINAL HAEMORRHAGE [None]
